FAERS Safety Report 24247674 (Version 2)
Quarter: 2024Q3

REPORT INFORMATION
  Report Type: Spontaneous
  Country: US (occurrence: US)
  Receive Date: 20240826
  Receipt Date: 20240830
  Transmission Date: 20241017
  Serious: Yes (Hospitalization, Disabling, Other)
  Sender: NOVARTIS
  Company Number: US-002147023-NVSC2024US169890

PATIENT
  Age: 24 Year
  Sex: Female

DRUGS (2)
  1. ADAKVEO [Suspect]
     Active Substance: CRIZANLIZUMAB-TMCA
     Indication: Sickle cell disease
     Dosage: UNK
     Route: 065
  2. ADAKVEO [Suspect]
     Active Substance: CRIZANLIZUMAB-TMCA
     Dosage: UNK (SECOND DOSE)
     Route: 042
     Dates: start: 20240617

REACTIONS (4)
  - Pain [Not Recovered/Not Resolved]
  - Conversion disorder [Unknown]
  - Pneumonia [Unknown]
  - Tracheal fistula [Unknown]
